FAERS Safety Report 9266605 (Version 2)
Quarter: 2013Q2

REPORT INFORMATION
  Report Type: Report from Study
  Country: BR (occurrence: BR)
  Receive Date: 20130502
  Receipt Date: 20130530
  Transmission Date: 20140414
  Serious: Yes (Death, Hospitalization)
  Sender: FDA-Public Use
  Company Number: PHHY2013BR043120

PATIENT
  Age: 91 Year
  Sex: Female

DRUGS (4)
  1. EXELON PATCH [Suspect]
     Indication: DEMENTIA ALZHEIMER^S TYPE
     Dosage: 9.5 MG, DAILY
     Route: 062
     Dates: start: 2011, end: 20130424
  2. ESCITALOPRAM [Concomitant]
     Indication: ANTIDEPRESSANT THERAPY
     Dosage: 1 DF, DAILY
     Route: 048
     Dates: start: 2011, end: 20130424
  3. GLIFAGE [Concomitant]
     Indication: DIABETES MELLITUS
     Dosage: 1 DF, DAILY
     Route: 048
     Dates: start: 2011, end: 20130424
  4. LOSARTAN [Concomitant]
     Indication: HYPERTENSION
     Dosage: 1 DF, DAILY
     Route: 048
     Dates: start: 2011, end: 20130424

REACTIONS (1)
  - Pulmonary embolism [Fatal]
